FAERS Safety Report 5603326-9 (Version None)
Quarter: 2008Q1

REPORT INFORMATION
  Report Type: 
  Country: None (occurrence: None)
  Receive Date: 20080122
  Receipt Date: 20080109
  Transmission Date: 20080703
  Serious: Yes (Hospitalization, Other)
  Sender: FDA-Public Use
  Company Number: 2007-04299

PATIENT
  Age: 59 Year
  Sex: Female
  Weight: 57 kg

DRUGS (9)
  1. VELCADE [Suspect]
     Indication: MULTIPLE MYELOMA
     Dosage: 1.80 MG, INTRAVENOUS
     Route: 042
     Dates: start: 20070717, end: 20070818
  2. DEXAMETHASONE TAB [Concomitant]
  3. THEO-DUR [Concomitant]
  4. MONTELUKAST SODIUM [Concomitant]
  5. GLYBURIDE [Concomitant]
  6. EPADEL (ETHYL ICOSAPENTATE) [Concomitant]
  7. FOSAMAX [Concomitant]
  8. MAG-OX (MAGNESIUM OXIDE) [Concomitant]
  9. HUMULIN R [Concomitant]

REACTIONS (2)
  - MUSCULAR WEAKNESS [None]
  - PLATELET COUNT DECREASED [None]
